FAERS Safety Report 6217493-X (Version None)
Quarter: 2009Q2

REPORT INFORMATION
  Report Type: 
  Country: None (occurrence: None)
  Receive Date: 20090608
  Receipt Date: 20081201
  Transmission Date: 20091009
  Serious: No
  Sender: FDA-Public Use
  Company Number: A0758742A

PATIENT
  Age: 56 Year
  Sex: Female

DRUGS (4)
  1. WELLBUTRIN XL [Suspect]
     Dosage: 300MG PER DAY
     Route: 048
     Dates: start: 20081001, end: 20081001
  2. SPIRIVA [Concomitant]
  3. FLONASE [Concomitant]
  4. SYMBICORT [Concomitant]

REACTIONS (2)
  - FEELING JITTERY [None]
  - PSYCHOMOTOR HYPERACTIVITY [None]
